FAERS Safety Report 10085834 (Version 1)
Quarter: 2014Q2

REPORT INFORMATION
  Report Type: Spontaneous
  Country: None (occurrence: None)
  Receive Date: 20140416
  Receipt Date: 20140416
  Transmission Date: 20141212
  Serious: Yes (Other)
  Sender: FDA-Public Use
  Company Number: 08-AUR-04040

PATIENT
  Age: 38 Year
  Sex: Male

DRUGS (10)
  1. ATENOLOL (ATENOLOL) [Suspect]
     Indication: HYPERTENSION
  2. ASPIRIN (ACETYLSALICYCLIC ACID) [Suspect]
     Indication: PRODUCT USED FOR UNKNOWN INDICATION
  3. DOXAZOSINE (DOXAZOSIN MESILATE) [Suspect]
     Indication: PRODUCT USED FOR UNKNOWN INDICATION
  4. PERINDOPRIL (PERINDOPRIL) [Suspect]
     Indication: HYPERTENSION
  5. ATORVASTATIN (ATORVASTATIN) [Suspect]
     Indication: HYPERLIPIDAEMIA
  6. CELLCEPT (MYCOPHENOLATE MOFETIL) [Suspect]
     Indication: RENAL TRANSPLANT
     Dosage: 500 MG, 2 IN 1 D
     Route: 048
     Dates: start: 20020615, end: 20060315
  7. CYCLOSPORIN (CICLOSPORIN) [Suspect]
  8. PYRIDOXIN (PYRIDOXINE HYDROCHLORIDE) [Suspect]
     Indication: PRODUCT USED FOR UNKNOWN INDICATION
  9. ISONIAZID (ISONIAZID) [Suspect]
     Indication: PRODUCT USED FOR UNKNOWN INDICATION
  10. LAMIVUDINE (LAMIVUDINE) [Suspect]
     Indication: HEPATITIS B

REACTIONS (1)
  - Spermatozoa progressive motility abnormal [None]
